FAERS Safety Report 21610027 (Version 1)
Quarter: 2022Q4

REPORT INFORMATION
  Report Type: Report from Study
  Country: CA (occurrence: CA)
  Receive Date: 20221117
  Receipt Date: 20221117
  Transmission Date: 20230113
  Serious: Yes (Hospitalization, Other)
  Sender: FDA-Public Use
  Company Number: CA-002147023-NVSC2021CA286744

PATIENT
  Age: 46 Year
  Sex: Male
  Weight: 61 kg

DRUGS (17)
  1. DABRAFENIB [Suspect]
     Active Substance: DABRAFENIB
     Indication: Papillary thyroid cancer
     Dosage: 150 MG, BID
     Route: 048
     Dates: start: 20210809, end: 20211018
  2. DABRAFENIB [Suspect]
     Active Substance: DABRAFENIB
     Dosage: 75 MG, QD
     Route: 048
     Dates: start: 20211123
  3. DABRAFENIB [Suspect]
     Active Substance: DABRAFENIB
     Dosage: 100 MG, BID
     Route: 048
     Dates: end: 20211226
  4. TRAMETINIB [Suspect]
     Active Substance: TRAMETINIB
     Indication: Papillary thyroid cancer
     Dosage: 2 MG, QD
     Route: 048
     Dates: start: 20210809, end: 20211018
  5. TRAMETINIB [Suspect]
     Active Substance: TRAMETINIB
     Dosage: 1 MG, QD
     Route: 048
     Dates: start: 20211123
  6. TRAMETINIB [Suspect]
     Active Substance: TRAMETINIB
     Dosage: 2 MG, QD
     Route: 048
     Dates: end: 20211226
  7. LEVOTHYROXINE [Concomitant]
     Active Substance: LEVOTHYROXINE
     Indication: Thyroid disorder
     Dosage: 0.2 MG, QD
     Route: 065
  8. PANTOPRAZOLE [Concomitant]
     Active Substance: PANTOPRAZOLE
     Indication: Gastrooesophageal reflux disease
     Dosage: 40 MG, QD
     Route: 065
  9. ESCITALOPRAM [Concomitant]
     Active Substance: ESCITALOPRAM OXALATE
     Indication: Anxiety
     Dosage: 20 MG, QHS
     Route: 065
  10. ESCITALOPRAM [Concomitant]
     Active Substance: ESCITALOPRAM OXALATE
     Indication: Depression
  11. MIRTAZAPINE [Concomitant]
     Active Substance: MIRTAZAPINE
     Indication: Anxiety
     Dosage: 30 MG, QHS
     Route: 065
  12. MIRTAZAPINE [Concomitant]
     Active Substance: MIRTAZAPINE
     Indication: Depression
  13. MIRTAZAPINE [Concomitant]
     Active Substance: MIRTAZAPINE
     Indication: Sleep disorder
  14. QUETIAPINE [Concomitant]
     Active Substance: QUETIAPINE
     Indication: Anxiety
     Dosage: 50 MG, QHS
     Route: 065
  15. QUETIAPINE [Concomitant]
     Active Substance: QUETIAPINE
     Indication: Depression
  16. TAMSULOSIN [Concomitant]
     Active Substance: TAMSULOSIN
     Indication: Single functional kidney
     Dosage: 0.4 UNK, QD (QHS)
     Route: 065
  17. TAMSULOSIN [Concomitant]
     Active Substance: TAMSULOSIN
     Indication: Vesicoureteric reflux

REACTIONS (5)
  - Pyrexia [Recovered/Resolved]
  - Syncope [Unknown]
  - Gastrointestinal haemorrhage [Unknown]
  - Dehydration [Unknown]
  - Sepsis [Unknown]

NARRATIVE: CASE EVENT DATE: 20210801
